FAERS Safety Report 9095919 (Version 2)
Quarter: 2013Q2

REPORT INFORMATION
  Report Type: Report from Study
  Country: JP (occurrence: JP)
  Receive Date: 20130219
  Receipt Date: 20130617
  Transmission Date: 20140414
  Serious: Yes (Life-Threatening, Hospitalization)
  Sender: FDA-Public Use
  Company Number: JP-ACTELION-A-CH2013-79176

PATIENT
  Age: 57 Year
  Sex: Female
  Weight: 56 kg

DRUGS (12)
  1. TRACLEER [Suspect]
     Indication: PULMONARY HYPERTENSION
     Dosage: 62.5 MG, BID
     Route: 048
     Dates: start: 20130116, end: 20130123
  2. TADALAFIL [Suspect]
     Indication: PULMONARY HYPERTENSION
     Dosage: 40 MG, QD
     Route: 048
     Dates: start: 20130111, end: 20130123
  3. WARFARIN POTASSIUM [Concomitant]
  4. GLIMEPIRIDE [Concomitant]
  5. FUROSEMIDE [Concomitant]
  6. SITAGLIPTIN PHOSPHATE [Concomitant]
  7. RABEPRAZOLE SODIUM [Concomitant]
  8. PREGABALIN [Concomitant]
  9. ETIZOLAM [Concomitant]
  10. LOXOPROFEN SODIUM [Concomitant]
  11. AMLODIPINE BESILATE [Concomitant]
  12. OXYGEN [Concomitant]

REACTIONS (2)
  - Interstitial lung disease [Recovered/Resolved]
  - Right ventricular failure [Recovered/Resolved]
